FAERS Safety Report 6578803-7 (Version None)
Quarter: 2010Q1

REPORT INFORMATION
  Report Type: 
  Country: None (occurrence: None)
  Receive Date: 20100211
  Receipt Date: 20100203
  Transmission Date: 20100710
  Serious: Yes (Hospitalization)
  Sender: FDA-Public Use
  Company Number: FR-GILEAD-2010-0026857

PATIENT
  Age: 52 Year
  Sex: Male

DRUGS (5)
  1. VIREAD [Suspect]
     Indication: HIV INFECTION
     Route: 048
     Dates: start: 20020618
  2. ZIAGEN [Concomitant]
     Indication: HIV INFECTION
     Dates: start: 20020618
  3. REYATAZ [Concomitant]
     Indication: HIV INFECTION
     Dates: start: 20050105
  4. NORVIR [Concomitant]
     Indication: HIV INFECTION
     Dates: start: 20050105
  5. AUGMENTIN [Concomitant]
     Indication: LUNG DISORDER
     Dates: start: 20091105

REACTIONS (2)
  - HYPOPHOSPHATAEMIA [None]
  - MYALGIA [None]
